FAERS Safety Report 10249511 (Version 3)
Quarter: 2015Q2

REPORT INFORMATION
  Report Type: Report from Study
  Country: US (occurrence: US)
  Receive Date: 20140620
  Receipt Date: 20150601
  Transmission Date: 20150821
  Serious: Yes (Life-Threatening)
  Sender: FDA-Public Use
  Company Number: US-BEH-2012031431

PATIENT
  Age: 70 Year
  Sex: Female
  Weight: 66.4 kg

DRUGS (9)
  1. ANCEF [Concomitant]
     Active Substance: CEFAZOLIN SODIUM
  2. BENICAR [Concomitant]
     Active Substance: OLMESARTAN MEDOXOMIL
     Dosage: 1 TABLET IN PM
     Route: 048
  3. ZOFRAN [Concomitant]
     Active Substance: ONDANSETRON HYDROCHLORIDE
  4. DANAZOL. [Concomitant]
     Active Substance: DANAZOL
     Dosage: 200 MG BID 5 DAYS PRE-INVASIVE PROCEDURES AND 5 DAYS POST
     Route: 048
  5. BERINERT [Suspect]
     Active Substance: HUMAN C1-ESTERASE INHIBITOR
     Indication: HEREDITARY ANGIOEDEMA
     Dosage: 4 ML/MIN (TOTAL DOSE 28 ML)
     Route: 042
     Dates: start: 20120123, end: 20120123
  6. DANAZOL. [Concomitant]
     Active Substance: DANAZOL
     Indication: HEREDITARY ANGIOEDEMA
     Route: 048
  7. CELEBREX [Concomitant]
     Active Substance: CELECOXIB
     Route: 048
  8. VICODIN [Concomitant]
     Active Substance: ACETAMINOPHEN\HYDROCODONE BITARTRATE
  9. ALL OTHER THERAPEUTIC PRODUCTS [Concomitant]
     Active Substance: UNSPECIFIED INGREDIENT

REACTIONS (4)
  - VIIth nerve paralysis [Recovered/Resolved]
  - Aphasia [Recovered/Resolved]
  - Fat embolism [Recovered/Resolved]
  - Hemiplegia [Recovered/Resolved]

NARRATIVE: CASE EVENT DATE: 20120124
